FAERS Safety Report 8336754-1 (Version None)
Quarter: 2012Q2

REPORT INFORMATION
  Report Type: 
  Country: None (occurrence: None)
  Receive Date: 20120504
  Receipt Date: 20120423
  Transmission Date: 20120825
  Serious: Yes (Other)
  Sender: FDA-Public Use
  Company Number: US-JNJFOC-20120408366

PATIENT
  Sex: Male
  Weight: 54.43 kg

DRUGS (11)
  1. VITAMIN B-12 [Concomitant]
  2. EYE DROPS NOS [Concomitant]
  3. CALCIUM CARBONATE [Concomitant]
  4. VITAMIN D [Concomitant]
  5. TYLENOL (CAPLET) [Concomitant]
  6. REMICADE [Suspect]
     Indication: CROHN'S DISEASE
     Route: 042
     Dates: start: 20100603
  7. MESALAMINE [Concomitant]
     Route: 048
  8. CONCERTA [Concomitant]
  9. VITAMIN [Concomitant]
  10. IRON [Concomitant]
  11. BENADRYL [Concomitant]

REACTIONS (1)
  - HEPATIC STEATOSIS [None]
